FAERS Safety Report 7451817-0 (Version None)
Quarter: 2011Q2

REPORT INFORMATION
  Report Type: 
  Country: None (occurrence: None)
  Receive Date: 20110502
  Receipt Date: 20100813
  Transmission Date: 20111010
  Serious: No
  Sender: FDA-Public Use
  Company Number: US-ASTRAZENECA-2010SE27889

PATIENT
  Sex: Female

DRUGS (1)
  1. NEXIUM [Suspect]
     Route: 048

REACTIONS (7)
  - OROPHARYNGEAL PAIN [None]
  - RESTLESSNESS [None]
  - COUGH [None]
  - MALAISE [None]
  - DRUG DOSE OMISSION [None]
  - INSOMNIA [None]
  - DYSPNOEA [None]
